FAERS Safety Report 5763985-7 (Version None)
Quarter: 2008Q2

REPORT INFORMATION
  Report Type: 
  Country: None (occurrence: None)
  Receive Date: 20080606
  Receipt Date: 20080606
  Transmission Date: 20081010
  Serious: Yes (Other)
  Sender: FDA-Public Use
  Company Number: None

PATIENT
  Age: 35 Year
  Sex: Female
  Weight: 49.8957 kg

DRUGS (1)
  1. CAPZASIN NO_MESS APPLICATOR 1 FL 1 FL OUNC CHATTAM, INC. [Suspect]
     Indication: ARTHRITIS
     Dosage: ONE SWIPE ONCE TRANSDERMAL
     Route: 062
     Dates: start: 20080604, end: 20080605

REACTIONS (3)
  - CHEST DISCOMFORT [None]
  - DIZZINESS [None]
  - PAIN [None]
